FAERS Safety Report 5171692-7 (Version None)
Quarter: 2006Q4

REPORT INFORMATION
  Report Type: 
  Country: None (occurrence: None)
  Receive Date: 20061205
  Receipt Date: 20061126
  Transmission Date: 20070319
  Serious: Yes (Other)
  Sender: FDA-Public Use
  Company Number: 2006145531

PATIENT
  Sex: Female

DRUGS (2)
  1. LYRICA [Suspect]
     Dosage: 50 MG (AT BEDTIME)
  2. METHADONE HCL [Concomitant]

REACTIONS (4)
  - DYSSTASIA [None]
  - FACIAL BONES FRACTURE [None]
  - FALL [None]
  - MUSCULAR WEAKNESS [None]
